FAERS Safety Report 15240006 (Version 1)
Quarter: 2018Q3

REPORT INFORMATION
  Report Type: Report from Study
  Country: US (occurrence: US)
  Receive Date: 20180803
  Receipt Date: 20180803
  Transmission Date: 20181010
  Serious: Yes (Other)
  Sender: FDA-Public Use
  Company Number: US-ACTELION-A-NJ2018-176442

PATIENT
  Age: 77 Year
  Sex: Male

DRUGS (1)
  1. VALCHLOR [Suspect]
     Active Substance: MECHLORETHAMINE
     Indication: MYCOSIS FUNGOIDES
     Dosage: UNK, QD
     Route: 061

REACTIONS (4)
  - Staphylococcal infection [Not Recovered/Not Resolved]
  - Application site erythema [Not Recovered/Not Resolved]
  - Neoplasm skin [Unknown]
  - Condition aggravated [Not Recovered/Not Resolved]
